FAERS Safety Report 16150372 (Version 1)
Quarter: 2019Q2

REPORT INFORMATION
  Report Type: Spontaneous
  Country: US (occurrence: US)
  Receive Date: 20190402
  Receipt Date: 20190402
  Transmission Date: 20190711
  Serious: No
  Sender: FDA-Public Use
  Company Number: None

PATIENT
  Age: 62 Year
  Sex: Male
  Weight: 74.25 kg

DRUGS (8)
  1. DULOXETINE HYDROCHLORIDE DELAYED-RELEASE 60 MG [Suspect]
     Active Substance: DULOXETINE HYDROCHLORIDE
     Indication: DEPRESSION
     Dosage: ?          QUANTITY:1 CAPSULE(S);?
     Route: 048
     Dates: start: 20190301
  2. DULOXETINE. [Concomitant]
     Active Substance: DULOXETINE
  3. ALBUTEROL. [Concomitant]
     Active Substance: ALBUTEROL
  4. ASPIRIN 81MG [Concomitant]
     Active Substance: ASPIRIN
  5. DEPO-TESTOSTERONE [Concomitant]
     Active Substance: TESTOSTERONE CYPIONATE
  6. VITAMIN D 2000 IU [Concomitant]
  7. MAGNESIUM CITRATE. [Concomitant]
     Active Substance: MAGNESIUM CITRATE
  8. ATORVASTATIN [Concomitant]
     Active Substance: ATORVASTATIN

REACTIONS (5)
  - Product substitution issue [None]
  - Amnesia [None]
  - Vertigo [None]
  - Paraesthesia [None]
  - Withdrawal syndrome [None]

NARRATIVE: CASE EVENT DATE: 20190309
